FAERS Safety Report 13955506 (Version 2)
Quarter: 2017Q4

REPORT INFORMATION
  Report Type: Spontaneous
  Country: JP (occurrence: JP)
  Receive Date: 20170911
  Receipt Date: 20171006
  Transmission Date: 20180320
  Serious: Yes (Other)
  Sender: FDA-Public Use
  Company Number: JP-PFIZER INC-2017383468

PATIENT
  Age: 24 Year
  Sex: Male

DRUGS (2)
  1. FAMOTIDINE. [Concomitant]
     Active Substance: FAMOTIDINE
  2. CELECOX [Suspect]
     Active Substance: CELECOXIB
     Indication: POSTOPERATIVE ANALGESIA
     Dosage: 100 MG, TWICE DAILY, IN THE MORNING AND EVENING
     Route: 048

REACTIONS (2)
  - Seizure [Recovered/Resolved]
  - Intentional underdose [Unknown]
